FAERS Safety Report 23899073 (Version 7)
Quarter: 2024Q3

REPORT INFORMATION
  Report Type: Spontaneous
  Country: HR (occurrence: HR)
  Receive Date: 20240526
  Receipt Date: 20240912
  Transmission Date: 20241016
  Serious: Yes (Other)
  Sender: Haleon PLC
  Company Number: HR-002147023-NVSC2021HR042645

PATIENT
  Age: 56 Year
  Sex: Female

DRUGS (60)
  1. DICLOFENAC [Suspect]
     Active Substance: DICLOFENAC
     Indication: Product used for unknown indication
     Dosage: UNK
     Route: 065
  2. DICLOFENAC [Suspect]
     Active Substance: DICLOFENAC
     Route: 065
  3. DICLOFENAC [Suspect]
     Active Substance: DICLOFENAC
     Dosage: UNK
     Route: 065
  4. ACITRETIN [Suspect]
     Active Substance: ACITRETIN
     Indication: Generalised pustular psoriasis
     Dosage: UNK
     Route: 065
  5. ACITRETIN [Suspect]
     Active Substance: ACITRETIN
     Dosage: UNK
     Route: 065
  6. ACITRETIN [Suspect]
     Active Substance: ACITRETIN
     Dosage: UNK
     Route: 065
  7. ACITRETIN [Suspect]
     Active Substance: ACITRETIN
     Route: 065
  8. ACITRETIN [Suspect]
     Active Substance: ACITRETIN
     Route: 065
  9. ACITRETIN [Suspect]
     Active Substance: ACITRETIN
     Route: 065
  10. COSENTYX [Suspect]
     Active Substance: SECUKINUMAB
     Indication: Generalised pustular psoriasis
     Dosage: UNK
     Route: 065
  11. COSENTYX [Suspect]
     Active Substance: SECUKINUMAB
     Route: 065
  12. COSENTYX [Suspect]
     Active Substance: SECUKINUMAB
     Route: 065
  13. BILASTINE [Suspect]
     Active Substance: BILASTINE
     Indication: Product used for unknown indication
     Dosage: UNK
     Route: 065
  14. BILASTINE [Suspect]
     Active Substance: BILASTINE
     Dosage: UNK
     Route: 065
  15. BILASTINE [Suspect]
     Active Substance: BILASTINE
     Route: 048
  16. BILASTINE [Suspect]
     Active Substance: BILASTINE
     Route: 048
  17. DESLORATADINE [Suspect]
     Active Substance: DESLORATADINE
     Indication: Product used for unknown indication
     Dosage: UNK
     Route: 065
  18. DESLORATADINE [Suspect]
     Active Substance: DESLORATADINE
     Dosage: 10 MG, 1+1+2 TB (TABLET)
     Route: 065
  19. DESLORATADINE [Suspect]
     Active Substance: DESLORATADINE
     Dosage: 10 MG, 1+1+2 TB (TABLET)
     Route: 065
  20. DESLORATADINE [Suspect]
     Active Substance: DESLORATADINE
     Route: 065
  21. APREMILAST [Suspect]
     Active Substance: APREMILAST
     Indication: Generalised pustular psoriasis
     Dosage: UNK
     Route: 065
  22. APREMILAST [Suspect]
     Active Substance: APREMILAST
     Dosage: UNK
     Route: 065
  23. APREMILAST [Suspect]
     Active Substance: APREMILAST
     Route: 065
  24. APREMILAST [Suspect]
     Active Substance: APREMILAST
     Route: 065
  25. ADALIMUMAB [Suspect]
     Active Substance: ADALIMUMAB
     Indication: Generalised pustular psoriasis
     Dosage: UNK
     Route: 058
  26. ADALIMUMAB [Suspect]
     Active Substance: ADALIMUMAB
     Route: 058
  27. ADALIMUMAB [Suspect]
     Active Substance: ADALIMUMAB
     Route: 065
  28. ADALIMUMAB [Suspect]
     Active Substance: ADALIMUMAB
     Route: 065
  29. LORATADINE [Suspect]
     Active Substance: LORATADINE
     Indication: Product used for unknown indication
     Dosage: UNK
     Route: 065
  30. LORATADINE [Suspect]
     Active Substance: LORATADINE
     Route: 065
  31. LORATADINE [Suspect]
     Active Substance: LORATADINE
     Route: 065
  32. RISANKIZUMAB [Suspect]
     Active Substance: RISANKIZUMAB
     Indication: Generalised pustular psoriasis
     Route: 058
  33. RISANKIZUMAB [Suspect]
     Active Substance: RISANKIZUMAB
     Dosage: Q3MO
     Route: 058
  34. RISANKIZUMAB [Suspect]
     Active Substance: RISANKIZUMAB
     Dosage: UNK UNK, Q3MO
     Route: 058
  35. RISANKIZUMAB [Suspect]
     Active Substance: RISANKIZUMAB
     Route: 065
  36. RISANKIZUMAB [Suspect]
     Active Substance: RISANKIZUMAB
     Route: 065
  37. METHYLPREDNISOLONE [Suspect]
     Active Substance: METHYLPREDNISOLONE
     Indication: Generalised pustular psoriasis
     Dosage: 8 MG, QD
     Route: 065
  38. METHYLPREDNISOLONE [Suspect]
     Active Substance: METHYLPREDNISOLONE
     Route: 065
  39. METHYLPREDNISOLONE [Suspect]
     Active Substance: METHYLPREDNISOLONE
     Dosage: 10 MG (10 MG TBL)
     Route: 065
  40. PIOGLITAZONE [Suspect]
     Active Substance: PIOGLITAZONE
     Indication: Product used for unknown indication
     Dosage: UNK
     Route: 065
  41. PIOGLITAZONE [Suspect]
     Active Substance: PIOGLITAZONE
     Dosage: UNK
     Route: 065
  42. PIOGLITAZONE [Suspect]
     Active Substance: PIOGLITAZONE
     Dosage: UNK
     Route: 065
  43. PIOGLITAZONE [Suspect]
     Active Substance: PIOGLITAZONE
     Route: 065
  44. PIOGLITAZONE [Suspect]
     Active Substance: PIOGLITAZONE
     Route: 065
  45. PIOGLITAZONE [Suspect]
     Active Substance: PIOGLITAZONE
     Route: 065
  46. KETOPROFEN [Suspect]
     Active Substance: KETOPROFEN
     Indication: Product used for unknown indication
     Dosage: UNK
     Route: 016
  47. KETOPROFEN [Suspect]
     Active Substance: KETOPROFEN
     Route: 016
  48. KETOPROFEN [Suspect]
     Active Substance: KETOPROFEN
     Dosage: UNK
     Route: 016
  49. PANTOPRAZOLE [Suspect]
     Active Substance: PANTOPRAZOLE
     Indication: Product used for unknown indication
     Dosage: 40 MG,QD (20 MG, BID)
     Route: 065
  50. PANTOPRAZOLE [Suspect]
     Active Substance: PANTOPRAZOLE
     Dosage: 40 MG,QD (20 MG, BID)
     Route: 065
  51. IBUPROFEN [Suspect]
     Active Substance: IBUPROFEN
     Indication: Product used for unknown indication
     Route: 065
  52. IBUPROFEN [Suspect]
     Active Substance: IBUPROFEN
     Route: 065
  53. IBUPROFEN [Suspect]
     Active Substance: IBUPROFEN
     Route: 065
  54. IBUPROFEN [Suspect]
     Active Substance: IBUPROFEN
     Route: 016
  55. CETIRIZINE HYDROCHLORIDE [Suspect]
     Active Substance: CETIRIZINE HYDROCHLORIDE
     Indication: Product used for unknown indication
     Dosage: 10 MG (10 MG 1+1+2 TBL)
     Route: 065
  56. CETIRIZINE HYDROCHLORIDE [Suspect]
     Active Substance: CETIRIZINE HYDROCHLORIDE
     Dosage: 10 MG (10 MG 1+1+2 TBL)
  57. COSENTYX [Suspect]
     Active Substance: SECUKINUMAB
     Indication: Product used for unknown indication
     Dosage: PRE FILLED SYRINGE (DEVICE) INJECTION
  58. CETIRIZINE HYDROCHLORIDE [Suspect]
     Active Substance: CETIRIZINE HYDROCHLORIDE
     Indication: Product used for unknown indication
  59. METHOTREXATE [Suspect]
     Active Substance: METHOTREXATE
     Indication: Generalised pustular psoriasis
  60. HYRIMOZ [Suspect]
     Active Substance: ADALIMUMAB-ADAZ
     Indication: Pustular psoriasis
     Route: 065

REACTIONS (14)
  - Inflammatory bowel disease [Unknown]
  - Asthenia [Unknown]
  - Urticaria [Unknown]
  - Myalgia [Unknown]
  - Erythema [Unknown]
  - Weight decreased [Unknown]
  - Face oedema [Unknown]
  - Faecal calprotectin increased [Unknown]
  - Product use in unapproved indication [Unknown]
  - Arthralgia [Unknown]
  - Diarrhoea [Unknown]
  - Drug ineffective [Unknown]
  - Fatigue [Unknown]
  - Off label use [Unknown]
